FAERS Safety Report 12958332 (Version 1)
Quarter: 2016Q4

REPORT INFORMATION
  Report Type: Spontaneous
  Country: US (occurrence: US)
  Receive Date: 20161121
  Receipt Date: 20161121
  Transmission Date: 20170207
  Serious: Yes (Death)
  Sender: FDA-Public Use
  Company Number: US-AUROBINDO-AUR-APL-2013-01466

PATIENT
  Sex: Male
  Weight: 58.97 kg

DRUGS (3)
  1. MELOXICAM AUROBINDO TABLETS 15 MG [Suspect]
     Active Substance: MELOXICAM
     Indication: ARTHRITIS
     Dosage: 15 MG,ONCE A DAY,
     Route: 048
  2. MELOXICAM AUROBINDO TABLETS 15 MG [Suspect]
     Active Substance: MELOXICAM
     Indication: RHEUMATOID ARTHRITIS
  3. METFORMIN [Concomitant]
     Active Substance: METFORMIN HYDROCHLORIDE
     Indication: PRODUCT USED FOR UNKNOWN INDICATION
     Dosage: UNK UNK,UNK,
     Route: 065

REACTIONS (3)
  - Vision blurred [Recovering/Resolving]
  - Dizziness [Recovered/Resolved]
  - Vitreous floaters [Not Recovered/Not Resolved]
